FAERS Safety Report 17456133 (Version 1)
Quarter: 2020Q1

REPORT INFORMATION
  Report Type: Spontaneous
  Country: US (occurrence: US)
  Receive Date: 20200225
  Receipt Date: 20200225
  Transmission Date: 20200409
  Serious: No
  Sender: FDA-Public Use
  Company Number: US-ASTRAZENECA-2020SE23612

PATIENT
  Age: 19562 Day
  Sex: Male
  Weight: 99.3 kg

DRUGS (15)
  1. KEPPRA [Concomitant]
     Active Substance: LEVETIRACETAM
  2. ATORVASTATIN [Concomitant]
     Active Substance: ATORVASTATIN
  3. MELOXICAM. [Concomitant]
     Active Substance: MELOXICAM
  4. ZYLOPRAM [Concomitant]
  5. FAMOTIDINE. [Concomitant]
     Active Substance: FAMOTIDINE
  6. PREDNISONE. [Concomitant]
     Active Substance: PREDNISONE
  7. HYDROCHLORTHIAZIDE [Concomitant]
     Active Substance: HYDROCHLOROTHIAZIDE
  8. TRAZODONE [Concomitant]
     Active Substance: TRAZODONE HYDROCHLORIDE
  9. LYNPARZA [Suspect]
     Active Substance: OLAPARIB
     Indication: HAEMANGIOPERICYTOMA
     Route: 048
     Dates: start: 20200119
  10. LISONOPRIL [Concomitant]
  11. LYNPARZA [Suspect]
     Active Substance: OLAPARIB
     Indication: HAEMANGIOPERICYTOMA
     Route: 048
     Dates: start: 20200120
  12. LYNPARZA [Suspect]
     Active Substance: OLAPARIB
     Indication: HAEMANGIOPERICYTOMA
     Dosage: 200 MG EVERY 10 HOURS FOR A DAILY DOSE OF 400 MG
     Route: 048
  13. LEVOTHYROXINE. [Concomitant]
     Active Substance: LEVOTHYROXINE
  14. TESTOSTERONE. [Concomitant]
     Active Substance: TESTOSTERONE
  15. MAGOX [Concomitant]

REACTIONS (4)
  - Malaise [Recovering/Resolving]
  - Fatigue [Not Recovered/Not Resolved]
  - Incorrect dose administered [Unknown]
  - Off label use [Unknown]

NARRATIVE: CASE EVENT DATE: 20200211
